FAERS Safety Report 13135371 (Version 1)
Quarter: 2017Q1

REPORT INFORMATION
  Report Type: Spontaneous
  Country: JP (occurrence: JP)
  Receive Date: 20170120
  Receipt Date: 20170120
  Transmission Date: 20170428
  Serious: Yes (Hospitalization)
  Sender: FDA-Public Use
  Company Number: JP-009507513-1701JPN007319

PATIENT
  Age: 57 Year
  Sex: Male

DRUGS (30)
  1. OPDIVO [Suspect]
     Active Substance: NIVOLUMAB
     Dosage: 3 MG/KG ONCE, EVERY 2 WEEKS (13TH CYCLE)
     Route: 041
     Dates: start: 2016, end: 2016
  2. OPDIVO [Suspect]
     Active Substance: NIVOLUMAB
     Dosage: 3 MG/KG ONCE, EVERY 2 WEEKS (16TH CYCLE)
     Route: 041
     Dates: start: 2016, end: 2016
  3. GLIMEPIRIDE. [Concomitant]
     Active Substance: GLIMEPIRIDE
     Dosage: UNK
     Dates: start: 2016, end: 20160807
  4. GLACTIV [Suspect]
     Active Substance: SITAGLIPTIN
     Indication: TYPE 2 DIABETES MELLITUS
     Route: 048
  5. OPDIVO [Suspect]
     Active Substance: NIVOLUMAB
     Dosage: 3 MG/KG ONCE, EVERY 2 WEEKS (3RD ND CYCLE)
     Route: 041
     Dates: start: 2016, end: 2016
  6. OPDIVO [Suspect]
     Active Substance: NIVOLUMAB
     Dosage: 3 MG/KG ONCE, EVERY 2 WEEKS (7TH CYCLE)
     Route: 041
     Dates: start: 2016, end: 2016
  7. OPDIVO [Suspect]
     Active Substance: NIVOLUMAB
     Dosage: 3 MG/KG ONCE, EVERY 2 WEEKS (17TH CYCLE)
     Route: 041
     Dates: start: 2016, end: 2016
  8. ETIZOLAM [Concomitant]
     Active Substance: ETIZOLAM
     Dosage: UNK
  9. OPDIVO [Suspect]
     Active Substance: NIVOLUMAB
     Dosage: 3 MG/KG ONCE, EVERY 2 WEEKS (15TH CYCLE)
     Route: 041
     Dates: start: 2016, end: 2016
  10. NEXIUM [Concomitant]
     Active Substance: ESOMEPRAZOLE MAGNESIUM
     Dosage: UNK
  11. MAGNESIUM OXIDE. [Concomitant]
     Active Substance: MAGNESIUM OXIDE
  12. OPDIVO [Suspect]
     Active Substance: NIVOLUMAB
     Dosage: ONCE, EVERY 2 WEEKS (2ND CYCLE)
     Route: 041
     Dates: start: 2016, end: 2016
  13. OPDIVO [Suspect]
     Active Substance: NIVOLUMAB
     Dosage: 3 MG/KG ONCE, EVERY 2 WEEKS (5TH CYCLE)
     Route: 041
     Dates: start: 2016, end: 2016
  14. OPDIVO [Suspect]
     Active Substance: NIVOLUMAB
     Dosage: 3 MG/KG ONCE, EVERY 2 WEEKS (11TH CYCLE)
     Route: 041
     Dates: start: 2016, end: 2016
  15. OPDIVO [Suspect]
     Active Substance: NIVOLUMAB
     Dosage: 3 MG/KG ONCE, EVERY 2 WEEKS (14TH CYCLE)
     Route: 041
     Dates: start: 2016, end: 2016
  16. BEZAFIBRATE [Concomitant]
     Active Substance: BEZAFIBRATE
     Dosage: UNK
  17. OPDIVO [Suspect]
     Active Substance: NIVOLUMAB
     Indication: NON-SMALL CELL LUNG CANCER RECURRENT
     Dosage: ONCE, EVERY 2 WEEKS (1ST CYCLE)
     Route: 041
     Dates: start: 20160302, end: 20160302
  18. OPDIVO [Suspect]
     Active Substance: NIVOLUMAB
     Dosage: 3 MG/KG ONCE, EVERY 2 WEEKS (12TH CYCLE)
     Route: 041
     Dates: start: 2016, end: 2016
  19. BROTIZOLAM [Concomitant]
     Active Substance: BROTIZOLAM
     Dosage: UNK
  20. METGLUCO [Concomitant]
     Active Substance: METFORMIN HYDROCHLORIDE
     Dosage: UNK
     Dates: start: 2016
  21. OPDIVO [Suspect]
     Active Substance: NIVOLUMAB
     Dosage: 3 MG/KG ONCE, EVERY 2 WEEKS (9TH CYCLE)
     Route: 041
     Dates: start: 2016, end: 2016
  22. OPDIVO [Suspect]
     Active Substance: NIVOLUMAB
     Indication: NON-SMALL CELL LUNG CANCER RECURRENT
     Dosage: UNK
  23. OPDIVO [Suspect]
     Active Substance: NIVOLUMAB
     Dosage: 3 MG/KG ONCE, EVERY 2 WEEKS (4TH ND CYCLE)
     Route: 041
     Dates: start: 2016, end: 2016
  24. OPDIVO [Suspect]
     Active Substance: NIVOLUMAB
     Dosage: 3 MG/KG ONCE, EVERY 2 WEEKS (6TH CYCLE)
     Route: 041
     Dates: start: 2016, end: 2016
  25. OPDIVO [Suspect]
     Active Substance: NIVOLUMAB
     Dosage: 3 MG/KG ONCE, EVERY 2 WEEKS (8TH CYCLE)
     Route: 041
     Dates: start: 2016, end: 2016
  26. OPDIVO [Suspect]
     Active Substance: NIVOLUMAB
     Dosage: 3 MG/KG ONCE, EVERY 2 WEEKS (18TH CYCLE)
     Route: 041
     Dates: start: 2016, end: 2016
  27. GLIMEPIRIDE. [Concomitant]
     Active Substance: GLIMEPIRIDE
     Dosage: UNK
     Dates: start: 20160808, end: 20161205
  28. OPDIVO [Suspect]
     Active Substance: NIVOLUMAB
     Dosage: 3 MG/KG ONCE, EVERY 2 WEEKS (10TH CYCLE)
     Route: 041
     Dates: start: 2016, end: 2016
  29. METGLUCO [Concomitant]
     Active Substance: METFORMIN HYDROCHLORIDE
     Indication: TYPE 2 DIABETES MELLITUS
     Dosage: UNK
     Dates: end: 2016
  30. THYRADIN [Concomitant]
     Active Substance: LEVOTHYROXINE
     Dosage: UNK
     Dates: start: 20160621

REACTIONS (3)
  - Hepatic function abnormal [Unknown]
  - Diabetes mellitus inadequate control [Not Recovered/Not Resolved]
  - Hypothyroidism [Not Recovered/Not Resolved]

NARRATIVE: CASE EVENT DATE: 2016
